FAERS Safety Report 8825409 (Version 3)
Quarter: 2012Q4

REPORT INFORMATION
  Report Type: 
  Country: GB (occurrence: GB)
  Receive Date: 20121004
  Receipt Date: 20121105
  Transmission Date: 20130627
  Serious: Yes (Life-Threatening, Hospitalization, Other)
  Sender: FDA-Public Use
  Company Number: GB-JNJFOC-20120911851

PATIENT
  Age: 21 Year
  Sex: Female
  Weight: 54 kg

DRUGS (9)
  1. ACETAMINOPHEN/CODEINE [Suspect]
     Indication: INTENTIONAL OVERDOSE
     Route: 048
     Dates: start: 20120829, end: 20120829
  2. IBUPROFEN [Suspect]
     Route: 048
  3. IBUPROFEN [Suspect]
     Indication: INTENTIONAL OVERDOSE
     Route: 048
     Dates: start: 20120829, end: 20120829
  4. NUROFEN [Suspect]
     Indication: INTENTIONAL OVERDOSE
     Route: 048
     Dates: start: 20120829, end: 20120829
  5. AMITRIPTYLINE [Suspect]
     Indication: INTENTIONAL OVERDOSE
     Dosage: half a blister strip
     Route: 048
     Dates: start: 20120829, end: 20120829
  6. CODEINE [Suspect]
     Indication: INTENTIONAL OVERDOSE
     Route: 048
     Dates: start: 20120829, end: 20120829
  7. CODEINE [Suspect]
     Indication: INTENTIONAL OVERDOSE
     Route: 048
     Dates: start: 20120829, end: 20120829
  8. DIAZEPAM [Suspect]
     Indication: INTENTIONAL OVERDOSE
     Route: 048
     Dates: start: 20120829, end: 20120829
  9. SERTRALINE [Suspect]
     Indication: INTENTIONAL OVERDOSE
     Route: 048
     Dates: start: 20120829, end: 20120829

REACTIONS (10)
  - Amylase increased [Unknown]
  - Aspartate aminotransferase increased [Unknown]
  - Aggression [Unknown]
  - Somnolence [Unknown]
  - Coma scale [Unknown]
  - Blood lactate dehydrogenase increased [Unknown]
  - Respiratory depression [Unknown]
  - Abdominal pain upper [Unknown]
  - Stubbornness [Unknown]
  - Intentional overdose [Unknown]
